FAERS Safety Report 6418320-8 (Version None)
Quarter: 2009Q4

REPORT INFORMATION
  Report Type: 
  Country: None (occurrence: None)
  Receive Date: 20091028
  Receipt Date: 20091020
  Transmission Date: 20100525
  Serious: Yes (Other)
  Sender: FDA-Public Use
  Company Number: US-ASTRAZENECA-2009SE21473

PATIENT
  Age: 19641 Day
  Sex: Male

DRUGS (2)
  1. CASODEX [Suspect]
     Indication: PROSTATE CANCER
     Route: 048
     Dates: start: 20090717
  2. RAD001 CODE NOT BROKEN [Suspect]
     Indication: PROSTATE CANCER
     Route: 065
     Dates: start: 20090717

REACTIONS (6)
  - HEPATIC LESION [None]
  - HYPOCALCAEMIA [None]
  - HYPOKALAEMIA [None]
  - LYMPHADENOPATHY [None]
  - OEDEMA PERIPHERAL [None]
  - SCROTAL SWELLING [None]
